FAERS Safety Report 16374045 (Version 1)
Quarter: 2019Q2

REPORT INFORMATION
  Report Type: Spontaneous
  Country: DK (occurrence: DK)
  Receive Date: 20190530
  Receipt Date: 20190530
  Transmission Date: 20190711
  Serious: Yes (Other)
  Sender: FDA-Public Use
  Company Number: DK-MYLANLABS-2019M1049490

PATIENT
  Age: 22 Year
  Sex: Female

DRUGS (3)
  1. LIDOKAIN                           /00033401/ [Concomitant]
     Active Substance: LIDOCAINE
     Indication: LOCAL ANAESTHESIA
     Dosage: 1 MILLILITER
     Dates: start: 20150407, end: 20150407
  2. LEDERSPAN [Suspect]
     Active Substance: TRIAMCINOLONE HEXACETONIDE
     Dosage: 20 MG/ML
     Dates: start: 20150407, end: 20150407
  3. LEDERSPAN [Suspect]
     Active Substance: TRIAMCINOLONE HEXACETONIDE
     Indication: OSTEOARTHRITIS
     Dosage: STYRKE: 20 MG/ML
     Dates: start: 201505, end: 201505

REACTIONS (3)
  - Injection site necrosis [Unknown]
  - Arthralgia [Not Recovered/Not Resolved]
  - Skin atrophy [Unknown]
